FAERS Safety Report 7437461-X (Version None)
Quarter: 2011Q2

REPORT INFORMATION
  Report Type: 
  Country: None (occurrence: None)
  Receive Date: 20110426
  Receipt Date: 20110419
  Transmission Date: 20111010
  Serious: No
  Sender: FDA-Public Use
  Company Number: US-B.I. PHARMACEUTICALS,INC./RIDGEFIELD-2011-BP-11295BP

PATIENT
  Age: 80 Year
  Sex: Female

DRUGS (8)
  1. LEVOXYL [Concomitant]
     Route: 048
  2. LISINOPRIL [Concomitant]
     Indication: HYPERTENSION
     Route: 048
  3. ZANTAC 75 [Suspect]
     Indication: GASTROOESOPHAGEAL REFLUX DISEASE
     Dosage: 75 MG
     Route: 048
     Dates: start: 20110418, end: 20110418
  4. DEXILANT [Concomitant]
     Route: 048
  5. ZOCOR [Concomitant]
     Route: 048
  6. NEXIUM [Concomitant]
     Indication: GASTROOESOPHAGEAL REFLUX DISEASE
     Route: 048
  7. LIBRIUM [Concomitant]
     Route: 048
  8. COUMADIN [Concomitant]
     Route: 048
     Dates: start: 20090101

REACTIONS (2)
  - DIARRHOEA [None]
  - FAECES DISCOLOURED [None]
